FAERS Safety Report 9000601 (Version 2)
Quarter: 2013Q1

REPORT INFORMATION
  Report Type: Spontaneous
  Country: US (occurrence: US)
  Receive Date: 20130107
  Receipt Date: 20130131
  Transmission Date: 20140127
  Serious: No
  Sender: FDA-Public Use
  Company Number: US-PFIZER INC-2013002936

PATIENT
  Age: 65 Year
  Sex: Male
  Weight: 102 kg

DRUGS (4)
  1. LYRICA [Suspect]
     Indication: NEUROPATHY PERIPHERAL
     Dosage: 75 MG, 2X/DAY
     Dates: start: 201209, end: 201209
  2. LYRICA [Suspect]
     Dosage: 50 MG, 1X/DAY AT NIGHT
     Dates: start: 201211
  3. LYRICA [Suspect]
     Dosage: 75 MG, 1X/DAY, AT NIGHT
     Dates: start: 2012, end: 20121225
  4. LYRICA [Suspect]
     Dosage: 50 MG IN THE MORNING AND 75 MG IN THE NIGHT
     Dates: start: 20121225

REACTIONS (5)
  - Somnolence [Recovered/Resolved]
  - Fatigue [Not Recovered/Not Resolved]
  - Feeling abnormal [Not Recovered/Not Resolved]
  - Speech disorder [Recovered/Resolved]
  - Gait disturbance [Recovered/Resolved]
